FAERS Safety Report 7732063-X (Version None)
Quarter: 2011Q3

REPORT INFORMATION
  Report Type: 
  Country: None (occurrence: None)
  Receive Date: 20110906
  Receipt Date: 20110802
  Transmission Date: 20111222
  Serious: No
  Sender: FDA-Public Use
  Company Number: US-AMGEN-USASP2011039236

PATIENT
  Age: 81 Year
  Sex: Female

DRUGS (13)
  1. SPIRIVA [Concomitant]
  2. MIRALAX [Concomitant]
  3. ASPIRIN [Concomitant]
     Dosage: UNK
  4. TYLENOL (CAPLET) [Concomitant]
     Dosage: 3 MG, QD
  5. COUMADIN [Concomitant]
     Dosage: UNK
  6. LASIX [Concomitant]
  7. LIPITOR [Concomitant]
     Dosage: UNK
  8. PROLIA [Suspect]
     Indication: OSTEOPOROSIS POSTMENOPAUSAL
     Dates: start: 20110728
  9. SYNTHROID [Concomitant]
     Dosage: UNK
  10. PREVACID [Concomitant]
  11. SYMBICORT [Concomitant]
     Dosage: UNK
  12. VITAMIN C                          /00008001/ [Concomitant]
  13. B COMPLEX                          /00212701/ [Concomitant]

REACTIONS (2)
  - DRY EYE [None]
  - VISION BLURRED [None]
